FAERS Safety Report 9034592 (Version 1)
Quarter: 2013Q1

REPORT INFORMATION
  Report Type: Spontaneous
  Country: US (occurrence: None)
  Receive Date: 20130115
  Receipt Date: 20130115
  Transmission Date: 20140127
  Serious: Yes (Other)
  Sender: FDA-Public Use
  Company Number: NO-ACCORD-015922

PATIENT
  Sex: Female

DRUGS (3)
  1. LEVETIRACETAM (LEVETIRACETAM) [Suspect]
     Indication: EPILEPSY
  2. CARBAMAZEPINE (CARBAMAZEPINE) CHEWABLE TABLET [Concomitant]
  3. TOPIRAMATE (TOPIRAMATE) [Concomitant]

REACTIONS (3)
  - Pregnancy [None]
  - Abortion spontaneous [None]
  - Exposure during pregnancy [None]
